FAERS Safety Report 9375532 (Version 1)
Quarter: 2013Q2

REPORT INFORMATION
  Report Type: Report from Study
  Country: AU (occurrence: AU)
  Receive Date: 20130628
  Receipt Date: 20130628
  Transmission Date: 20140414
  Serious: Yes (Other)
  Sender: FDA-Public Use
  Company Number: PHHY2011AU46575

PATIENT
  Age: 82 Year
  Sex: Female

DRUGS (6)
  1. EXJADE [Suspect]
     Indication: IRON OVERLOAD
     Dosage: 500 MG, UNK
     Route: 048
     Dates: start: 201007
  2. FELODIPINE [Concomitant]
     Indication: HYPERTENSION
     Dosage: 30 MG, DAILY
     Route: 048
     Dates: start: 1991
  3. ALDACTONE [Concomitant]
     Indication: HYPERTENSION
     Dosage: 25 MG, UNK
     Route: 048
     Dates: start: 1991
  4. MINAX [Concomitant]
     Indication: HYPERTENSION
     Dosage: 120 MG, DAILY
     Route: 048
     Dates: start: 2001
  5. KARVEA [Concomitant]
     Indication: HYPERTENSION
     Dosage: 300 MG, DAILY
     Dates: start: 1991
  6. ALLOPURINOL [Concomitant]
     Indication: GOUT
     Dosage: 100 MG, DAILY
     Route: 048
     Dates: start: 2001

REACTIONS (7)
  - Transient ischaemic attack [Recovering/Resolving]
  - Blood viscosity increased [Recovering/Resolving]
  - Blood iron increased [Recovering/Resolving]
  - Speech disorder [Recovered/Resolved]
  - Disorientation [Recovered/Resolved]
  - Rash erythematous [Not Recovered/Not Resolved]
  - Rash pruritic [Not Recovered/Not Resolved]
